FAERS Safety Report 10461559 (Version 3)
Quarter: 2014Q4

REPORT INFORMATION
  Report Type: Spontaneous
  Country: JP (occurrence: JP)
  Receive Date: 20140918
  Receipt Date: 20141015
  Transmission Date: 20150528
  Serious: Yes (Death, Hospitalization)
  Sender: FDA-Public Use
  Company Number: JP-SA-2014SA077794

PATIENT
  Age: 76 Year
  Sex: Female

DRUGS (3)
  1. PLAVIX [Suspect]
     Active Substance: CLOPIDOGREL BISULFATE
     Indication: PERIPHERAL ARTERIAL OCCLUSIVE DISEASE
     Route: 048
  2. CARBAMAZEPINE. [Suspect]
     Active Substance: CARBAMAZEPINE
     Indication: AGGRESSION
     Route: 048
  3. CARBAMAZEPINE. [Suspect]
     Active Substance: CARBAMAZEPINE
     Indication: EPILEPSY
     Route: 048

REACTIONS (9)
  - Erythema multiforme [Unknown]
  - Skin erosion [Unknown]
  - Hepatic function abnormal [Unknown]
  - Pyrexia [Unknown]
  - Hepatic failure [Fatal]
  - Toxic epidermal necrolysis [Unknown]
  - Drug-induced liver injury [Unknown]
  - Pruritus generalised [Unknown]
  - Dermatitis exfoliative [Unknown]
